FAERS Safety Report 8622437-7 (Version None)
Quarter: 2012Q3

REPORT INFORMATION
  Report Type: 
  Country: None (occurrence: None)
  Receive Date: 20120827
  Receipt Date: 20120816
  Transmission Date: 20120928
  Serious: Yes (Hospitalization)
  Sender: FDA-Public Use
  Company Number: US-BIOGENIDEC-2012BI029199

PATIENT
  Sex: Female

DRUGS (2)
  1. AVONEX [Suspect]
     Route: 030
     Dates: start: 20030101, end: 20110301
  2. AVONEX [Suspect]
     Indication: MULTIPLE SCLEROSIS
     Route: 030
     Dates: start: 20010405, end: 20030101

REACTIONS (3)
  - MULTIPLE SCLEROSIS RELAPSE [None]
  - LOSS OF CONTROL OF LEGS [None]
  - WHITE BLOOD CELL COUNT DECREASED [None]
